FAERS Safety Report 5619537-2 (Version None)
Quarter: 2008Q1

REPORT INFORMATION
  Report Type: 
  Country: None (occurrence: None)
  Receive Date: 20080114
  Receipt Date: 20061121
  Transmission Date: 20080703
  Serious: Yes (Hospitalization)
  Sender: FDA-Public Use
  Company Number: A03200606971

PATIENT
  Age: 78 Year
  Sex: Female

DRUGS (9)
  1. PLAVIX [Suspect]
     Indication: STENT PLACEMENT
     Dosage: 75 MG QD - ORAL
     Route: 048
  2. ACETYLSALICYLIC ACID SRT [Concomitant]
  3. GLYBURIDE [Concomitant]
  4. METOPROLOL TARTRATE [Concomitant]
  5. EZETIMIBE [Concomitant]
  6. LOVASTATIN [Concomitant]
  7. PENTOXIFYLLINE [Concomitant]
  8. VITAMIN CAP [Concomitant]
  9. OMEPRAZOLE [Concomitant]

REACTIONS (2)
  - HAEMATEMESIS [None]
  - ULCER HAEMORRHAGE [None]
